FAERS Safety Report 5655258-8 (Version None)
Quarter: 2008Q1

REPORT INFORMATION
  Report Type: 
  Country: None (occurrence: None)
  Receive Date: 20080307
  Receipt Date: 20080226
  Transmission Date: 20080703
  Serious: Yes (Other)
  Sender: FDA-Public Use
  Company Number: B0502160A

PATIENT
  Sex: Female

DRUGS (6)
  1. PAROXETINE HCL [Suspect]
     Indication: DRUG USE FOR UNKNOWN INDICATION
     Dates: start: 20000411
  2. ACAMPROSATE [Concomitant]
  3. ZOLPIDEM [Concomitant]
  4. INDERAL [Concomitant]
  5. ESCITALOPRAM OXALATE [Concomitant]
  6. ZOPICLONE [Concomitant]

REACTIONS (8)
  - ALCOHOL WITHDRAWAL SYNDROME [None]
  - BACK PAIN [None]
  - DEPRESSED MOOD [None]
  - DRUG WITHDRAWAL SYNDROME [None]
  - FAMILIAL TREMOR [None]
  - INSOMNIA [None]
  - SUICIDAL IDEATION [None]
  - TEARFULNESS [None]
